FAERS Safety Report 5029264-0 (Version None)
Quarter: 2006Q2

REPORT INFORMATION
  Report Type: 
  Country: None (occurrence: None)
  Receive Date: 20060616
  Receipt Date: 20060616
  Transmission Date: 20061013
  Serious: Yes (Hospitalization)
  Sender: FDA-Public Use
  Company Number: None

PATIENT
  Age: 46 Year
  Sex: Male
  Weight: 125.9 kg

DRUGS (1)
  1. NAPROSYN [Suspect]
     Indication: GOUT
     Dosage: 500MG BID PO , SELF MEDICATING
     Route: 048

REACTIONS (4)
  - DIARRHOEA [None]
  - HAEMOPTYSIS [None]
  - OCCULT BLOOD POSITIVE [None]
  - UPPER GASTROINTESTINAL HAEMORRHAGE [None]
